FAERS Safety Report 8432368-3 (Version None)
Quarter: 2012Q2

REPORT INFORMATION
  Report Type: 
  Country: None (occurrence: None)
  Receive Date: 20120613
  Receipt Date: 20120601
  Transmission Date: 20120825
  Serious: Yes (Other)
  Sender: FDA-Public Use
  Company Number: US-ELI_LILLY_AND_COMPANY-US201112006794

PATIENT
  Sex: Female

DRUGS (2)
  1. FORTEO [Suspect]
     Dosage: 20 UG, QD
     Route: 058
     Dates: start: 20111020
  2. FORTEO [Suspect]
     Dosage: 20 UG, QD
     Dates: start: 20111020

REACTIONS (2)
  - GASTROINTESTINAL NEOPLASM [None]
  - INJECTION SITE HAEMORRHAGE [None]
